FAERS Safety Report 14137704 (Version 1)
Quarter: 2017Q4

REPORT INFORMATION
  Report Type: Other
  Country: US (occurrence: US)
  Receive Date: 20171027
  Receipt Date: 20171027
  Transmission Date: 20180321
  Serious: Yes (Death, Other)
  Sender: FDA-Public Use
  Company Number: US-INTERCEPT-PMOCA2017000975

PATIENT

DRUGS (2)
  1. OCALIVA [Suspect]
     Active Substance: OBETICHOLIC ACID
     Indication: BILIARY CIRRHOSIS PRIMARY
     Dosage: 5 MG, QD
     Route: 048
     Dates: start: 2017, end: 2017
  2. URSO [Concomitant]
     Active Substance: URSODIOL

REACTIONS (5)
  - Skeletal injury [Unknown]
  - Bedridden [Unknown]
  - Aggression [Unknown]
  - Fall [Fatal]
  - Confusional state [Unknown]

NARRATIVE: CASE EVENT DATE: 201704
